FAERS Safety Report 25760111 (Version 1)
Quarter: 2025Q3

REPORT INFORMATION
  Report Type: Spontaneous
  Country: EU (occurrence: EU)
  Receive Date: 20250904
  Receipt Date: 20250904
  Transmission Date: 20251021
  Serious: Yes (Other)
  Sender: GRANULES PHARMACEUTICALS INC
  Company Number: EU-GRANULES-FR-2025GRALIT00497

PATIENT
  Age: 42 Year
  Sex: Female

DRUGS (1)
  1. SERTRALINE HYDROCHLORIDE [Suspect]
     Active Substance: SERTRALINE HYDROCHLORIDE
     Indication: Bipolar disorder
     Route: 065

REACTIONS (3)
  - Multiple acyl-coenzyme A dehydrogenase deficiency [Recovered/Resolved]
  - Myopathy [Recovered/Resolved]
  - Product use in unapproved indication [Unknown]
